FAERS Safety Report 16429492 (Version 1)
Quarter: 2019Q2

REPORT INFORMATION
  Report Type: Spontaneous
  Country: CH (occurrence: CH)
  Receive Date: 20190614
  Receipt Date: 20190614
  Transmission Date: 20190711
  Serious: Yes (Death, Hospitalization, Other)
  Sender: FDA-Public Use
  Company Number: CH-ROCHE-2335807

PATIENT
  Age: 41 Year
  Sex: Male

DRUGS (1)
  1. XELODA [Suspect]
     Active Substance: CAPECITABINE
     Indication: ADENOCARCINOMA
     Route: 048

REACTIONS (6)
  - Diarrhoea [Unknown]
  - Mucosal inflammation [Unknown]
  - Multiple organ dysfunction syndrome [Fatal]
  - Decreased appetite [Unknown]
  - Oral pain [Unknown]
  - Lethargy [Unknown]
